FAERS Safety Report 19955259 (Version 3)
Quarter: 2023Q1

REPORT INFORMATION
  Report Type: Spontaneous
  Country: US (occurrence: US)
  Receive Date: 20211014
  Receipt Date: 20230106
  Transmission Date: 20230417
  Serious: Yes (Other)
  Sender: FDA-Public Use
  Company Number: US-PFIZER INC-202101341124

PATIENT
  Age: 84 Year
  Sex: Male
  Weight: 90.26 kg

DRUGS (1)
  1. VYNDAMAX [Suspect]
     Active Substance: TAFAMIDIS
     Indication: Cardiac amyloidosis
     Dosage: 61 MG
     Dates: start: 202110

REACTIONS (14)
  - Glaucoma [Unknown]
  - Hydronephrosis [Unknown]
  - Nephrolithiasis [Unknown]
  - Benign prostatic hyperplasia [Unknown]
  - Urinary tract obstruction [Unknown]
  - Carpal tunnel syndrome [Unknown]
  - Axillary mass [Unknown]
  - Ureterolithiasis [Unknown]
  - Mixed incontinence [Unknown]
  - Vitamin D deficiency [Unknown]
  - Essential hypertension [Unknown]
  - Mass [Unknown]
  - Chronic obstructive pulmonary disease [Unknown]
  - Product dose omission issue [Unknown]
